FAERS Safety Report 4425637-5 (Version None)
Quarter: 2004Q3

REPORT INFORMATION
  Report Type: 
  Country: None (occurrence: None)
  Receive Date: 20040809
  Receipt Date: 20040730
  Transmission Date: 20050211
  Serious: Yes (Other)
  Sender: FDA-Public Use
  Company Number: S04-USA-04616-01

PATIENT
  Age: 81 Year
  Sex: Female

DRUGS (5)
  1. NAMENDA [Suspect]
     Indication: DEMENTIA
     Dosage: 10 MG BID PO
     Route: 048
     Dates: start: 20040129
  2. ARICEPT [Concomitant]
  3. RISPERIDONE [Concomitant]
  4. NORVASC [Concomitant]
  5. ALPRAZOLAM [Concomitant]

REACTIONS (2)
  - CEREBRAL ATROPHY [None]
  - MENTAL IMPAIRMENT [None]
